FAERS Safety Report 15395850 (Version 1)
Quarter: 2018Q3

REPORT INFORMATION
  Report Type: Spontaneous
  Country: US (occurrence: US)
  Receive Date: 20180912
  Receipt Date: 20180912
  Transmission Date: 20181010
  Serious: Yes (Other)
  Sender: FDA-Public Use
  Company Number: None

PATIENT
  Age: 54 Year
  Sex: Female
  Weight: 51.75 kg

DRUGS (2)
  1. SYNTHROID [Concomitant]
     Active Substance: LEVOTHYROXINE SODIUM
  2. CLINDAMYCIN PHOSPHATE TOPICAL SOLUTION USP , CLINDAMYCIN PH 1% SOLUTIO [Suspect]
     Active Substance: CLINDAMYCIN PHOSPHATE
     Indication: RASH
     Dosage: ?          QUANTITY:1 DROP(S);?
     Route: 061
     Dates: start: 20180820, end: 20180823

REACTIONS (8)
  - Application site pruritus [None]
  - Application site papules [None]
  - Application site swelling [None]
  - Impaired work ability [None]
  - Application site dryness [None]
  - Rash [None]
  - Application site exfoliation [None]
  - Application site erythema [None]

NARRATIVE: CASE EVENT DATE: 20180823
